FAERS Safety Report 5845360-X (Version None)
Quarter: 2008Q3

REPORT INFORMATION
  Report Type: 
  Country: None (occurrence: None)
  Receive Date: 20080731
  Receipt Date: 20080623
  Transmission Date: 20090109
  Serious: No
  Sender: FDA-Public Use
  Company Number: US200805000673

PATIENT
  Age: 56 Year
  Sex: Female
  Weight: 99.8 kg

DRUGS (8)
  1. BYETTA [Suspect]
     Indication: TYPE 2 DIABETES MELLITUS
     Dosage: 5 UG, 2/D, SUBCUTANEOUS ; 10 UG, 2/D, SUBCUTANEOUS
     Route: 058
     Dates: start: 20060613
  2. AMBIEN [Concomitant]
  3. KLONOPIN [Concomitant]
  4. LISINOPRIL AND HYDROCHLOROTHIAZIDE [Concomitant]
  5. ASPIRIN [Concomitant]
  6. PLAVIX [Concomitant]
  7. FISH OIL (FISH OIL) [Concomitant]
  8. EXENATIDE [Concomitant]

REACTIONS (1)
  - HEPATIC STEATOSIS [None]
